FAERS Safety Report 19332105 (Version 1)
Quarter: 2021Q2

REPORT INFORMATION
  Report Type: Report from Study
  Country: US (occurrence: US)
  Receive Date: 20210529
  Receipt Date: 20210529
  Transmission Date: 20210717
  Serious: Yes (Other)
  Sender: FDA-Public Use
  Company Number: US-TAKEDA-US201910193

PATIENT
  Sex: Male

DRUGS (1)
  1. HUMAN NORMAL IMMUNOGLOBULIN; LIQUID [Suspect]
     Active Substance: HUMAN IMMUNOGLOBULIN G
     Indication: PRIMARY IMMUNODEFICIENCY SYNDROME
     Route: 042

REACTIONS (8)
  - Blood cholesterol increased [Unknown]
  - Injection site erythema [Recovering/Resolving]
  - Hepatic steatosis [Unknown]
  - Injection site phlebitis [Recovering/Resolving]
  - Injection site pruritus [Recovering/Resolving]
  - Blood glucose abnormal [Unknown]
  - Hepatomegaly [Unknown]
  - Enzyme level increased [Unknown]
